FAERS Safety Report 9764257 (Version 2)
Quarter: 2013Q4

REPORT INFORMATION
  Report Type: Report from Study
  Country: US (occurrence: US)
  Receive Date: 20131216
  Receipt Date: 20131216
  Transmission Date: 20140711
  Serious: Yes (Other)
  Sender: FDA-Public Use
  Company Number: US-ROCHE-1109681

PATIENT
  Sex: 0

DRUGS (3)
  1. PEG-INTERFERON ALFA 2A [Suspect]
     Indication: HEPATITIS C
     Route: 065
  2. RIBAVIRIN [Suspect]
     Indication: HEPATITIS C
     Dosage: 1000-1200 MG/DAY
     Route: 065
  3. TMC435 (NS3/4A PROTEASE INHIBITOR) [Suspect]
     Indication: HEPATITIS C
     Dosage: 75 OR 150MG QD
     Route: 048

REACTIONS (4)
  - Anaemia [Unknown]
  - Rash [Unknown]
  - Neutropenia [Unknown]
  - Hyperbilirubinaemia [Unknown]
